FAERS Safety Report 16891745 (Version 2)
Quarter: 2020Q1

REPORT INFORMATION
  Report Type: Spontaneous
  Country: CA (occurrence: CA)
  Receive Date: 20191007
  Receipt Date: 20200114
  Transmission Date: 20200409
  Serious: Yes (Life-Threatening, Other)
  Sender: FDA-Public Use
  Company Number: CA-SAMSUNG BIOEPIS-SB-2019-29168

PATIENT
  Age: 45 Year
  Sex: Female

DRUGS (63)
  1. CELLCEPT [Suspect]
     Active Substance: MYCOPHENOLATE MOFETIL\MYCOPHENOLATE MOFETIL HYDROCHLORIDE
     Indication: TRANSPLANT
     Route: 048
  2. ENBREL [Suspect]
     Active Substance: ETANERCEPT
     Indication: PRODUCT USED FOR UNKNOWN INDICATION
     Route: 058
  3. ENBREL [Suspect]
     Active Substance: ETANERCEPT
     Route: 058
  4. PROGRAF [Suspect]
     Active Substance: TACROLIMUS
     Route: 048
  5. ANTITHYMOCYTE IMMUNOGLOBULIN [Suspect]
     Active Substance: THYMOCYTE IMMUNE GLOBULIN NOS
     Indication: PRODUCT USED FOR UNKNOWN INDICATION
     Route: 065
  6. MYCOPHENOLATE MOFETIL. [Suspect]
     Active Substance: MYCOPHENOLATE MOFETIL
     Indication: PRODUCT USED FOR UNKNOWN INDICATION
     Dosage: UNKNOWN
     Route: 065
  7. MYCOPHENOLATE MOFETIL. [Suspect]
     Active Substance: MYCOPHENOLATE MOFETIL
     Route: 048
  8. REMICADE [Suspect]
     Active Substance: INFLIXIMAB
     Dosage: UNKNOWN
     Route: 065
  9. ANTITHYMOCYTE IMMUNOGLOBULIN (HORSE) [Suspect]
     Active Substance: EQUINE THYMOCYTE IMMUNE GLOBULIN
     Route: 065
  10. ENBREL [Suspect]
     Active Substance: ETANERCEPT
     Route: 058
  11. ENBREL [Suspect]
     Active Substance: ETANERCEPT
     Route: 058
  12. RAPAMUNE [Suspect]
     Active Substance: SIROLIMUS
     Indication: TRANSPLANT
     Dosage: UNKNOWN
     Route: 065
  13. RAPAMUNE [Suspect]
     Active Substance: SIROLIMUS
     Indication: PRODUCT USED FOR UNKNOWN INDICATION
  14. ANTITHYMOCYTE IMMUNOGLOBULIN [Suspect]
     Active Substance: THYMOCYTE IMMUNE GLOBULIN NOS
     Indication: TRANSPLANT
     Route: 065
  15. REMICADE [Suspect]
     Active Substance: INFLIXIMAB
     Indication: PRODUCT USED FOR UNKNOWN INDICATION
     Dosage: UNKNOWN
     Route: 042
  16. INFLIXIMAB [Suspect]
     Active Substance: INFLIXIMAB
     Indication: PRODUCT USED FOR UNKNOWN INDICATION
     Dosage: UNKNOWN
     Route: 042
  17. ENBREL [Suspect]
     Active Substance: ETANERCEPT
     Route: 065
  18. NEORAL [Suspect]
     Active Substance: CYCLOSPORINE
     Indication: TRANSPLANT
     Dosage: UNKNOWN
     Route: 065
  19. PROGRAF [Suspect]
     Active Substance: TACROLIMUS
     Indication: PRODUCT USED FOR UNKNOWN INDICATION
     Route: 048
  20. PROGRAF [Suspect]
     Active Substance: TACROLIMUS
     Route: 048
  21. PROGRAF [Suspect]
     Active Substance: TACROLIMUS
     Route: 048
  22. PROGRAF [Suspect]
     Active Substance: TACROLIMUS
     Route: 048
  23. PROGRAF [Suspect]
     Active Substance: TACROLIMUS
     Route: 048
  24. DACLIZUMAB [Suspect]
     Active Substance: DACLIZUMAB
     Indication: TRANSPLANT
     Route: 042
  25. MYCOPHENOLATE MOFETIL. [Suspect]
     Active Substance: MYCOPHENOLATE MOFETIL
     Route: 065
  26. MYCOPHENOLATE MOFETIL. [Suspect]
     Active Substance: MYCOPHENOLATE MOFETIL
     Route: 048
  27. TACROLIMUS. [Suspect]
     Active Substance: TACROLIMUS
     Route: 048
  28. TACROLIMUS. [Suspect]
     Active Substance: TACROLIMUS
     Route: 048
  29. ENBREL [Suspect]
     Active Substance: ETANERCEPT
     Route: 058
  30. ANTITHYMOCYTE IMMUNOGLOBULIN [Suspect]
     Active Substance: THYMOCYTE IMMUNE GLOBULIN NOS
     Route: 058
  31. DACLIZUMAB [Suspect]
     Active Substance: DACLIZUMAB
     Route: 042
  32. DACLIZUMAB [Suspect]
     Active Substance: DACLIZUMAB
     Route: 065
  33. MYCOPHENOLATE MOFETIL. [Suspect]
     Active Substance: MYCOPHENOLATE MOFETIL
     Route: 048
  34. TACROLIMUS. [Suspect]
     Active Substance: TACROLIMUS
     Indication: PRODUCT USED FOR UNKNOWN INDICATION
     Route: 065
  35. CELLCEPT [Suspect]
     Active Substance: MYCOPHENOLATE MOFETIL\MYCOPHENOLATE MOFETIL HYDROCHLORIDE
     Indication: PRODUCT USED FOR UNKNOWN INDICATION
     Route: 048
  36. ENBREL [Suspect]
     Active Substance: ETANERCEPT
     Route: 058
  37. ENBREL [Suspect]
     Active Substance: ETANERCEPT
     Route: 048
  38. PROGRAF [Suspect]
     Active Substance: TACROLIMUS
     Route: 048
  39. SULFASALAZINE. [Suspect]
     Active Substance: SULFASALAZINE
     Indication: RHEUMATOID ARTHRITIS
     Dosage: UNKNOWN
     Route: 065
  40. SULFASALAZINE. [Suspect]
     Active Substance: SULFASALAZINE
     Indication: PRODUCT USED FOR UNKNOWN INDICATION
     Route: 065
  41. ANTITHYMOCYTE IMMUNOGLOBULIN [Suspect]
     Active Substance: THYMOCYTE IMMUNE GLOBULIN NOS
     Route: 065
  42. TACROLIMUS. [Suspect]
     Active Substance: TACROLIMUS
     Route: 065
  43. TACROLIMUS. [Suspect]
     Active Substance: TACROLIMUS
     Route: 048
  44. PROGRAF [Suspect]
     Active Substance: TACROLIMUS
     Indication: TRANSPLANT
     Route: 048
  45. PROGRAF [Suspect]
     Active Substance: TACROLIMUS
     Route: 048
  46. PROGRAF [Suspect]
     Active Substance: TACROLIMUS
     Route: 048
  47. PROGRAF [Suspect]
     Active Substance: TACROLIMUS
     Route: 048
  48. PROGRAF [Suspect]
     Active Substance: TACROLIMUS
     Route: 065
  49. PROGRAF [Suspect]
     Active Substance: TACROLIMUS
     Route: 048
  50. DACLIZUMAB [Suspect]
     Active Substance: DACLIZUMAB
     Indication: PRODUCT USED FOR UNKNOWN INDICATION
     Dosage: UNKNOWN
     Route: 042
  51. TACROLIMUS. [Suspect]
     Active Substance: TACROLIMUS
     Route: 048
  52. TACROLIMUS. [Suspect]
     Active Substance: TACROLIMUS
     Route: 048
  53. CELLCEPT [Suspect]
     Active Substance: MYCOPHENOLATE MOFETIL\MYCOPHENOLATE MOFETIL HYDROCHLORIDE
     Route: 048
  54. DACLIZUMAB [Suspect]
     Active Substance: DACLIZUMAB
     Dosage: UNKNOWN
     Route: 065
  55. MYCOPHENOLATE MOFETIL. [Suspect]
     Active Substance: MYCOPHENOLATE MOFETIL
     Indication: TRANSPLANT
     Route: 048
  56. MYCOPHENOLATE MOFETIL. [Suspect]
     Active Substance: MYCOPHENOLATE MOFETIL
     Route: 065
  57. TACROLIMUS. [Suspect]
     Active Substance: TACROLIMUS
     Indication: TRANSPLANT
     Route: 048
  58. TACROLIMUS. [Suspect]
     Active Substance: TACROLIMUS
     Route: 048
  59. ANTITHYMOCYTE IMMUNOGLOBULIN (HORSE) [Suspect]
     Active Substance: EQUINE THYMOCYTE IMMUNE GLOBULIN
     Indication: TRANSPLANT
     Route: 065
  60. PROGRAF [Suspect]
     Active Substance: TACROLIMUS
     Route: 065
  61. PROGRAF [Suspect]
     Active Substance: TACROLIMUS
     Dosage: UNKNOWN
     Route: 065
  62. PROGRAF [Suspect]
     Active Substance: TACROLIMUS
     Dosage: UNKNOWN
     Route: 048
  63. MYCOPHENOLATE MOFETIL. [Suspect]
     Active Substance: MYCOPHENOLATE MOFETIL
     Route: 065

REACTIONS (15)
  - Rheumatoid arthritis [Not Recovered/Not Resolved]
  - Liver function test abnormal [Not Recovered/Not Resolved]
  - Sleep disorder due to general medical condition, insomnia type [Not Recovered/Not Resolved]
  - Loss of personal independence in daily activities [Not Recovered/Not Resolved]
  - Drug ineffective [Not Recovered/Not Resolved]
  - Pneumonia [Not Recovered/Not Resolved]
  - Alopecia [Not Recovered/Not Resolved]
  - Ovarian cyst [Not Recovered/Not Resolved]
  - Overdose [Not Recovered/Not Resolved]
  - Product use issue [Not Recovered/Not Resolved]
  - Acne [Not Recovered/Not Resolved]
  - Condition aggravated [Not Recovered/Not Resolved]
  - Pain [Not Recovered/Not Resolved]
  - Transplant dysfunction [Not Recovered/Not Resolved]
  - Transplant rejection [Not Recovered/Not Resolved]
